FAERS Safety Report 5574731-4 (Version None)
Quarter: 2007Q4

REPORT INFORMATION
  Report Type: 
  Country: None (occurrence: None)
  Receive Date: 20071221
  Receipt Date: 20071221
  Transmission Date: 20080405
  Serious: No
  Sender: FDA-Public Use
  Company Number: None

PATIENT
  Age: 24 Year
  Sex: Male
  Weight: 89.3586 kg

DRUGS (2)
  1. KLONOPIN [Suspect]
     Indication: ANXIETY
     Dosage: 1 50MG TABLET BI DAILY PO
     Route: 048
     Dates: start: 20040801, end: 20061230
  2. KLONOPIN [Suspect]
     Indication: PANIC ATTACK
     Dosage: 1 50MG TABLET BI DAILY PO
     Route: 048
     Dates: start: 20040801, end: 20061230

REACTIONS (4)
  - AMNESIA [None]
  - DRUG DEPENDENCE [None]
  - DRUG WITHDRAWAL SYNDROME [None]
  - SUICIDE ATTEMPT [None]
